FAERS Safety Report 16086051 (Version 1)
Quarter: 2019Q1

REPORT INFORMATION
  Report Type: Spontaneous
  Country: JP (occurrence: JP)
  Receive Date: 20190318
  Receipt Date: 20190318
  Transmission Date: 20190418
  Serious: Yes (Death, Hospitalization)
  Sender: FDA-Public Use
  Company Number: JP-009507513-1903JPN007270

PATIENT
  Age: 86 Year
  Sex: Male

DRUGS (11)
  1. POLAPREZINC [Concomitant]
     Active Substance: POLAPREZINC
     Dosage: UNK
  2. MIGLITOL. [Concomitant]
     Active Substance: MIGLITOL
     Dosage: UNK
  3. NIFEDIPINE. [Concomitant]
     Active Substance: NIFEDIPINE
     Dosage: UNK
  4. ETIZOLAM [Concomitant]
     Active Substance: ETIZOLAM
     Dosage: UNK
  5. PYRIDOXINE HYDROCHLORIDE. [Concomitant]
     Active Substance: PYRIDOXINE HYDROCHLORIDE
     Dosage: UNK
  6. BENFOTIAMINE [Concomitant]
     Active Substance: BENFOTIAMINE
     Dosage: UNK
  7. CYANOCOBALAMIN. [Concomitant]
     Active Substance: CYANOCOBALAMIN
     Dosage: UNK
  8. GLIMEPIRIDE. [Suspect]
     Active Substance: GLIMEPIRIDE
     Dosage: 1 MILLIGRAM, BEFORE BREAKFAST (DOSE ADJUSTED BY HIMSELF WHEN HE COULD NOT EAT 50% OR MORE MEALS)
     Route: 048
  9. PANTETHINE [Concomitant]
     Active Substance: PANTETHINE
     Dosage: UNK
  10. FLUVOXAMINE MALEATE. [Concomitant]
     Active Substance: FLUVOXAMINE MALEATE
     Dosage: UNK
  11. SITAGLIPTIN PHOSPHATE [Suspect]
     Active Substance: SITAGLIPTIN PHOSPHATE
     Indication: DIABETES MELLITUS
     Dosage: 50 MG, ONCE A DAY (AFTER BREAKFAST)
     Route: 048

REACTIONS (9)
  - Acute kidney injury [Unknown]
  - Hypoglycaemia [Unknown]
  - Rhabdomyolysis [Unknown]
  - Metabolic acidosis [Unknown]
  - Septic shock [Fatal]
  - Encephalitis [Fatal]
  - Pneumonia [Fatal]
  - Urinary tract infection [Unknown]
  - Bacteraemia [Unknown]

NARRATIVE: CASE EVENT DATE: 2013
